FAERS Safety Report 16528513 (Version 3)
Quarter: 2019Q3

REPORT INFORMATION
  Report Type: Spontaneous
  Country: LT (occurrence: LT)
  Receive Date: 20190703
  Receipt Date: 20190710
  Transmission Date: 20191004
  Serious: Yes (Hospitalization, Other)
  Sender: FDA-Public Use
  Company Number: LT-ASTRAZENECA-2019SE94043

PATIENT
  Age: 71 Year
  Sex: Male

DRUGS (6)
  1. SPIRONOLACTONE. [Concomitant]
     Active Substance: SPIRONOLACTONE
     Route: 048
  2. CARDICET RETARD [Concomitant]
     Route: 048
  3. ASPIRINI [Concomitant]
     Route: 048
  4. ATORVASTATIN [Concomitant]
     Active Substance: ATORVASTATIN
     Route: 048
  5. BRILIQUE [Suspect]
     Active Substance: TICAGRELOR
     Indication: MYOCARDIAL INFARCTION
     Route: 048
     Dates: start: 20190618
  6. TORASEMIDE [Concomitant]
     Active Substance: TORSEMIDE
     Route: 048

REACTIONS (9)
  - Myocardial infarction [Recovering/Resolving]
  - Gastrointestinal haemorrhage [Recovering/Resolving]
  - Hyperhidrosis [Recovering/Resolving]
  - Vascular stent stenosis [Recovering/Resolving]
  - Electrocardiogram abnormal [Recovering/Resolving]
  - Vascular stent thrombosis [Recovering/Resolving]
  - Headache [Recovering/Resolving]
  - Anaemia [Recovering/Resolving]
  - Dyspnoea at rest [Recovering/Resolving]

NARRATIVE: CASE EVENT DATE: 20190627
